FAERS Safety Report 8966960 (Version 1)
Quarter: 2012Q4

REPORT INFORMATION
  Report Type: Report from Study
  Country: FR (occurrence: FR)
  Receive Date: 20121214
  Receipt Date: 20121214
  Transmission Date: 20130627
  Serious: Yes (Other)
  Sender: FDA-Public Use
  Company Number: FR-ABBOTT-12P-056-1018643-00

PATIENT
  Age: 26 Year
  Sex: Female

DRUGS (5)
  1. KALETRA TABLETS 200/50 [Suspect]
     Indication: HIV INFECTION
     Route: 048
     Dates: start: 20080822, end: 20081021
  2. COMBIVIR [Concomitant]
     Indication: HIV INFECTION
     Dates: start: 20080822, end: 20081112
  3. COMBIVIR [Concomitant]
  4. NORVIR [Concomitant]
     Indication: HIV INFECTION
  5. CRIXIVAN [Concomitant]
     Indication: HIV INFECTION

REACTIONS (3)
  - Virologic failure [Unknown]
  - Nausea [Recovered/Resolved]
  - Vomiting [Recovered/Resolved]
